FAERS Safety Report 24747248 (Version 1)
Quarter: 2024Q4

REPORT INFORMATION
  Report Type: Report from Study
  Country: BR (occurrence: BR)
  Receive Date: 20241218
  Receipt Date: 20241218
  Transmission Date: 20250115
  Serious: Yes (Other)
  Sender: ALEXION PHARMACEUTICALS
  Company Number: BR-AstraZeneca-CH-00765462A

PATIENT

DRUGS (8)
  1. TAGRISSO [Suspect]
     Active Substance: OSIMERTINIB
     Route: 065
  2. TAGRISSO [Suspect]
     Active Substance: OSIMERTINIB
     Route: 065
  3. TAGRISSO [Suspect]
     Active Substance: OSIMERTINIB
     Route: 065
  4. TAGRISSO [Suspect]
     Active Substance: OSIMERTINIB
     Route: 065
  5. IRESSA [Suspect]
     Active Substance: GEFITINIB
     Route: 065
  6. IRESSA [Suspect]
     Active Substance: GEFITINIB
     Route: 065
  7. IRESSA [Suspect]
     Active Substance: GEFITINIB
     Route: 065
  8. IRESSA [Suspect]
     Active Substance: GEFITINIB
     Route: 065

REACTIONS (1)
  - Disease progression [Unknown]
